FAERS Safety Report 9772565 (Version 1)
Quarter: 2013Q4

REPORT INFORMATION
  Report Type: Spontaneous
  Country: FR (occurrence: FR)
  Receive Date: 20131219
  Receipt Date: 20131219
  Transmission Date: 20140711
  Serious: Yes (Hospitalization)
  Sender: FDA-Public Use
  Company Number: FR-ASTRAZENECA-2013SE90648

PATIENT
  Age: 31460 Day
  Sex: Female
  Weight: 51.7 kg

DRUGS (3)
  1. INEXIUM [Suspect]
     Route: 048
     Dates: start: 20131010, end: 20131017
  2. TAHOR [Suspect]
     Indication: HYPERCHOLESTEROLAEMIA
     Route: 048
     Dates: start: 20131010, end: 20131017
  3. LOVENOX [Suspect]
     Indication: PULMONARY EMBOLISM
     Route: 058
     Dates: start: 20131010, end: 20131017

REACTIONS (1)
  - Drug eruption [Recovered/Resolved]
